FAERS Safety Report 5609701-0 (Version None)
Quarter: 2008Q1

REPORT INFORMATION
  Report Type: 
  Country: None (occurrence: None)
  Receive Date: 20080131
  Receipt Date: 20080125
  Transmission Date: 20080703
  Serious: Yes (Other)
  Sender: FDA-Public Use
  Company Number: B0505146A

PATIENT
  Age: 20 Year
  Sex: Male
  Weight: 50 kg

DRUGS (3)
  1. ZOVIRAX [Suspect]
     Dosage: 500MG THREE TIMES PER DAY
     Route: 042
     Dates: start: 20080118, end: 20080122
  2. MEROPEN [Concomitant]
     Indication: DRUG USE FOR UNKNOWN INDICATION
     Dosage: 1G PER DAY
  3. GLYCEOL [Concomitant]
     Indication: DRUG USE FOR UNKNOWN INDICATION
     Dosage: 200ML TWICE PER DAY

REACTIONS (5)
  - ABNORMAL BEHAVIOUR [None]
  - DYSLALIA [None]
  - POSTRENAL FAILURE [None]
  - TOXIC ENCEPHALOPATHY [None]
  - URINARY RETENTION [None]
